FAERS Safety Report 8581403-0 (Version None)
Quarter: 2012Q3

REPORT INFORMATION
  Report Type: 
  Country: None (occurrence: None)
  Receive Date: 20120727
  Receipt Date: 20120712
  Transmission Date: 20120928
  Serious: Yes (Other)
  Sender: FDA-Public Use
  Company Number: USA/USA/12/0025111

PATIENT
  Age: 32 Year
  Sex: Male

DRUGS (4)
  1. ZIDOVUDINE AND LAMIVUDINE (ZIDOVUDINE W/LAMIVUDINE) [Concomitant]
  2. VENLAFAXINE [Suspect]
     Indication: MAJOR DEPRESSION
     Dosage: 150 MG, 1 IN 1 D
  3. NUCLEOSIDE REVERSE TRANSCRIPTASE INHIBITORS (NUCLEOSIDE REVERSE TRANSC [Concomitant]
  4. INDINIVIR SULFATE [Suspect]
     Indication: HIV INFECTION

REACTIONS (5)
  - DRUG INTERACTION [None]
  - BLOOD HIV RNA INCREASED [None]
  - MAJOR DEPRESSION [None]
  - LETHARGY [None]
  - VIROLOGIC FAILURE [None]
